FAERS Safety Report 11552042 (Version 1)
Quarter: 2015Q3

REPORT INFORMATION
  Report Type: Spontaneous
  Country: US (occurrence: US)
  Receive Date: 20150903
  Receipt Date: 20150903
  Transmission Date: 20151125
  Serious: No
  Sender: FDA-Public Use
  Company Number: US-ELI_LILLY_AND_COMPANY-US201006002511

PATIENT
  Age: 67 Year
  Sex: Female

DRUGS (4)
  1. NOVOLOG [Concomitant]
     Active Substance: INSULIN ASPART
  2. LEVEMIR [Concomitant]
     Active Substance: INSULIN DETEMIR
  3. BYETTA [Concomitant]
     Active Substance: EXENATIDE
  4. HUMALOG [Suspect]
     Active Substance: INSULIN LISPRO
     Dosage: 35 U, OTHER
     Dates: start: 20100608

REACTIONS (3)
  - Dizziness [Unknown]
  - Headache [Unknown]
  - Nervousness [Unknown]

NARRATIVE: CASE EVENT DATE: 20100608
